FAERS Safety Report 8564647-3 (Version None)
Quarter: 2012Q3

REPORT INFORMATION
  Report Type: 
  Country: None (occurrence: None)
  Receive Date: 20120727
  Receipt Date: 20120727
  Transmission Date: 20120928
  Serious: Yes (Hospitalization, Other)
  Sender: FDA-Public Use
  Company Number: None

PATIENT
  Sex: Male

DRUGS (2)
  1. PLAVIX [Concomitant]
  2. TOPROL-XL [Suspect]
     Indication: HYPERTENSION
     Dosage: 100MG ONCE A DAY PO
     Route: 048

REACTIONS (1)
  - PENILE PAIN [None]
